FAERS Safety Report 10163180 (Version 4)
Quarter: 2014Q2

REPORT INFORMATION
  Report Type: Spontaneous
  Country: AU (occurrence: AU)
  Receive Date: 20140509
  Receipt Date: 20140612
  Transmission Date: 20141212
  Serious: Yes (Other)
  Sender: FDA-Public Use
  Company Number: AU-GLAXOSMITHKLINE-B0992041A

PATIENT
  Age: 28 Year
  Sex: Female

DRUGS (1)
  1. SERETIDE 50MCG/500MCG [Suspect]
     Indication: PRODUCT USED FOR UNKNOWN INDICATION
     Route: 055

REACTIONS (3)
  - Respiratory distress [Unknown]
  - Drug ineffective [Unknown]
  - Product quality issue [Unknown]
